FAERS Safety Report 9766467 (Version 1)
Quarter: 2013Q4

REPORT INFORMATION
  Report Type: Spontaneous
  Country: US (occurrence: US)
  Receive Date: 20131217
  Receipt Date: 20131217
  Transmission Date: 20140711
  Serious: No
  Sender: FDA-Public Use
  Company Number: US-BIOGENIDEC-2013BI117971

PATIENT
  Age: 69 Year
  Sex: Female

DRUGS (10)
  1. TECFIDERA [Suspect]
     Indication: MULTIPLE SCLEROSIS
     Route: 048
     Dates: start: 201307
  2. TECFIDERA [Suspect]
     Indication: MULTIPLE SCLEROSIS
     Route: 048
     Dates: start: 201307
  3. ADVIL [Concomitant]
  4. AMITRIPTYLINE [Concomitant]
  5. ASPIRIN [Concomitant]
  6. ASTAXATHIN [Concomitant]
  7. CALCIUM CARBONATE [Concomitant]
  8. PRILOSEC [Concomitant]
  9. RELPAX [Concomitant]
  10. VITAMIN D [Concomitant]

REACTIONS (2)
  - Gastric disorder [Not Recovered/Not Resolved]
  - Hot flush [Not Recovered/Not Resolved]
